FAERS Safety Report 21993462 (Version 1)
Quarter: 2023Q1

REPORT INFORMATION
  Report Type: Spontaneous
  Country: US (occurrence: US)
  Receive Date: 20230215
  Receipt Date: 20230215
  Transmission Date: 20230417
  Serious: No
  Sender: FDA-Public Use
  Company Number: US-GSKCCFUS-Case-01622230_AE-91583

PATIENT
  Sex: Female

DRUGS (1)
  1. FLOVENT DISKUS [Suspect]
     Active Substance: FLUTICASONE PROPIONATE
     Indication: Product used for unknown indication
     Dosage: 100 UG
     Dates: start: 2017

REACTIONS (3)
  - Device use error [Unknown]
  - Expired product administered [Unknown]
  - Product label confusion [Unknown]

NARRATIVE: CASE EVENT DATE: 20230101
